FAERS Safety Report 8191882-9 (Version None)
Quarter: 2012Q1

REPORT INFORMATION
  Report Type: 
  Country: None (occurrence: None)
  Receive Date: 20120307
  Receipt Date: 20120224
  Transmission Date: 20120608
  Serious: Yes (Hospitalization)
  Sender: FDA-Public Use
  Company Number: PHFR2011GB05295

PATIENT
  Sex: Male
  Weight: 52.2 kg

DRUGS (2)
  1. CLOZARIL [Suspect]
     Indication: SCHIZOPHRENIA
     Dosage: 325 MG, UNK
     Route: 048
     Dates: start: 20041026
  2. LAMOTRIGINE [Concomitant]
     Dosage: 100 MG, UNK

REACTIONS (8)
  - PYREXIA [None]
  - SCHIZOPHRENIA [None]
  - INCOHERENT [None]
  - MENTAL DISORDER [None]
  - BLOOD CREATINE PHOSPHOKINASE INCREASED [None]
  - FALL [None]
  - MALAISE [None]
  - HYPOPHAGIA [None]
